FAERS Safety Report 12618450 (Version 1)
Quarter: 2016Q3

REPORT INFORMATION
  Report Type: Report from Study
  Country: BR (occurrence: BR)
  Receive Date: 20160803
  Receipt Date: 20160803
  Transmission Date: 20161109
  Serious: Yes (Other)
  Sender: FDA-Public Use
  Company Number: BR-GLAXOSMITHKLINE-BR2016GSK110424

PATIENT
  Weight: 90 kg

DRUGS (2)
  1. DICLOFENAC POTASSIUM. [Suspect]
     Active Substance: DICLOFENAC POTASSIUM
     Indication: ARTHRALGIA
     Dosage: UNK UNK, PRN
     Route: 065
  2. DICLOFENAC DIETHYLAMMONIUM SALT [Suspect]
     Active Substance: DICLOFENAC DIETHYLAMINE
     Indication: PAIN
     Dosage: UNK UNK, PRN

REACTIONS (9)
  - Muscular weakness [Unknown]
  - Abasia [Unknown]
  - Limb discomfort [Unknown]
  - Pathological fracture [Unknown]
  - Body height decreased [Unknown]
  - Road traffic accident [Unknown]
  - Tibia fracture [Unknown]
  - Pain [Unknown]
  - Injury [Unknown]
